FAERS Safety Report 18156966 (Version 1)
Quarter: 2020Q3

REPORT INFORMATION
  Report Type: Spontaneous
  Country: US (occurrence: US)
  Receive Date: 20200817
  Receipt Date: 20200817
  Transmission Date: 20201103
  Serious: Yes (Death, Life-Threatening, Hospitalization, Disabling)
  Sender: FDA-Public Use
  Company Number: None

PATIENT
  Age: 64 Year
  Sex: Female
  Weight: 111 kg

DRUGS (3)
  1. REMDESIVIR IV [Suspect]
     Active Substance: REMDESIVIR
     Indication: COVID-19 TREATMENT
     Route: 040
     Dates: start: 20200715, end: 20200715
  2. REMDESIVIR IV [Suspect]
     Active Substance: REMDESIVIR
     Route: 040
     Dates: start: 20200716, end: 20200719
  3. DEXAMETHASONE. [Concomitant]
     Active Substance: DEXAMETHASONE
     Dates: start: 20200714, end: 20200729

REACTIONS (6)
  - Shock [None]
  - COVID-19 pneumonia [None]
  - Cerebral infarction [None]
  - Respiratory failure [None]
  - Oxygen saturation decreased [None]
  - Atrial fibrillation [None]

NARRATIVE: CASE EVENT DATE: 20200714
